FAERS Safety Report 4875802-8 (Version None)
Quarter: 2006Q1

REPORT INFORMATION
  Report Type: 
  Country: None (occurrence: None)
  Receive Date: 20060106
  Receipt Date: 20051229
  Transmission Date: 20060701
  Serious: Yes (Life-Threatening, Hospitalization)
  Sender: FDA-Public Use
  Company Number: 163-20785-06010024

PATIENT
  Age: 65 Year
  Sex: Male
  Weight: 97.5234 kg

DRUGS (6)
  1. THALOMID [Suspect]
     Indication: MULTIPLE MYELOMA
     Dosage: 200 MG QHS ORAL
     Route: 048
     Dates: start: 20010802, end: 20020120
  2. DECADRON [Suspect]
     Indication: MULTIPLE MYELOMA
     Dosage: 40 MG QWEEK PULSE
     Dates: start: 20010802, end: 20030101
  3. CORTICOSTEROIDS [Concomitant]
  4. HYZAAR [Concomitant]
  5. NORVASC [Concomitant]
  6. TOPROL-XL [Concomitant]

REACTIONS (12)
  - AMPUTATION [None]
  - BLOOD IMMUNOGLOBULIN A DECREASED [None]
  - BLOOD IMMUNOGLOBULIN G INCREASED [None]
  - BLOOD IMMUNOGLOBULIN M DECREASED [None]
  - BRONCHITIS [None]
  - DISEASE PROGRESSION [None]
  - LIGHT CHAIN ANALYSIS INCREASED [None]
  - LUNG DISORDER [None]
  - NEUROPATHY [None]
  - OSTEOMYELITIS [None]
  - PNEUMONIA [None]
  - PROTEIN URINE PRESENT [None]
